FAERS Safety Report 5971329-0 (Version None)
Quarter: 2008Q4

REPORT INFORMATION
  Report Type: 
  Country: None (occurrence: None)
  Receive Date: 20081128
  Receipt Date: 20081117
  Transmission Date: 20090506
  Serious: Yes (Other)
  Sender: FDA-Public Use
  Company Number: MY-PFIZER INC-2008098996

PATIENT
  Age: 40 Year
  Sex: Female

DRUGS (2)
  1. UNASYN [Suspect]
  2. INFLUENZA VACCINE [Concomitant]

REACTIONS (2)
  - ENDOMETRITIS [None]
  - URTICARIA [None]
